FAERS Safety Report 19812154 (Version 2)
Quarter: 2021Q4

REPORT INFORMATION
  Report Type: Spontaneous
  Country: SE (occurrence: SE)
  Receive Date: 20210909
  Receipt Date: 20211104
  Transmission Date: 20220303
  Serious: Yes (Other)
  Sender: FDA-Public Use
  Company Number: SE-MPA-1616592026217

PATIENT
  Age: 69 Year
  Sex: Male

DRUGS (7)
  1. ROSUVASTATIN [Suspect]
     Active Substance: ROSUVASTATIN
     Indication: Cardiovascular disorder
     Dosage: 40 MILLIGRAM, QD
     Route: 048
     Dates: start: 202011
  2. ROSUVASTATIN [Suspect]
     Active Substance: ROSUVASTATIN
     Indication: Lipids abnormal
     Dosage: 5 MILLIGRAM, QD
     Route: 048
     Dates: start: 20210316, end: 20210316
  3. EZETIMIBE [Concomitant]
     Active Substance: EZETIMIBE
     Dosage: 10 MILLIGRAM, QD
     Route: 048
  4. PANTOPRAZOLE [Concomitant]
     Active Substance: PANTOPRAZOLE
     Dosage: UNK
     Route: 048
  5. CLOPIDOGREL [Concomitant]
     Active Substance: CLOPIDOGREL BISULFATE
     Dosage: 75 MILLIGRAM, QD
     Route: 048
  6. CANDESARTAN [Concomitant]
     Active Substance: CANDESARTAN
     Dosage: STRENGHT IN VERSION 0: 16 MG STRENGHT IN VERSION 0: 8 MG
  7. ASPIRIN [Concomitant]
     Active Substance: ASPIRIN
     Dosage: 75 MILLIGRAM, QD
     Route: 048

REACTIONS (2)
  - Pain [Unknown]
  - Back pain [Unknown]

NARRATIVE: CASE EVENT DATE: 20210201
